FAERS Safety Report 9624694 (Version 2)
Quarter: 2014Q1

REPORT INFORMATION
  Report Type: Spontaneous
  Country: JP (occurrence: None)
  Receive Date: 20131010
  Receipt Date: 20140205
  Transmission Date: 20141002
  Serious: Yes (Hospitalization, Other)
  Sender: FDA-Public Use
  Company Number: CO-OR-JP-2013-114

PATIENT
  Age: 17 Year
  Sex: Female

DRUGS (3)
  1. PREDNISOLONE [Suspect]
     Indication: THROMBOTIC THROMBOCYTOPENIC PURPURA
     Dates: start: 2008
  2. METHYLPREDNISOLONE [Concomitant]
  3. RITUXIMAB [Concomitant]

REACTIONS (3)
  - Grand mal convulsion [None]
  - Off label use [None]
  - Neurological symptom [None]
